FAERS Safety Report 9695082 (Version 1)
Quarter: 2013Q4

REPORT INFORMATION
  Report Type: Spontaneous
  Country: CH (occurrence: CH)
  Receive Date: 20131119
  Receipt Date: 20131119
  Transmission Date: 20140711
  Serious: Yes (Hospitalization)
  Sender: FDA-Public Use
  Company Number: PHHY2013CH130549

PATIENT
  Age: 74 Year
  Sex: Male
  Weight: 53 kg

DRUGS (6)
  1. SANDOSTATIN LAR [Suspect]
     Indication: CARCINOID SYNDROME
     Dosage: 20 MG, UNK
     Route: 030
     Dates: start: 20130717, end: 20130717
  2. PANTOPRAZOL [Concomitant]
     Indication: GASTROOESOPHAGEAL REFLUX DISEASE
     Dosage: 20 MG, QD
     Route: 048
  3. CODEIN [Concomitant]
     Indication: DIARRHOEA
     Dosage: 25 MG, QID
     Route: 048
  4. LOPERAMIDE [Concomitant]
     Indication: DIARRHOEA
     Dosage: 2 MG, QID
     Route: 048
  5. NEPHROTRANS [Concomitant]
     Dosage: 500 MG, TID
     Route: 048
  6. PANZYTRAT [Concomitant]
     Dosage: 25000 IU, QID
     Route: 048

REACTIONS (2)
  - Altered state of consciousness [Recovered/Resolved]
  - Hypoglycaemia [Recovered/Resolved]
